FAERS Safety Report 7553811-8 (Version None)
Quarter: 2011Q2

REPORT INFORMATION
  Report Type: 
  Country: None (occurrence: None)
  Receive Date: 20110617
  Receipt Date: 20110607
  Transmission Date: 20111010
  Serious: Yes (Other)
  Sender: FDA-Public Use
  Company Number: BE-AMGEN-BELSP2011024343

PATIENT
  Age: 58 Year
  Sex: Female
  Weight: 65 kg

DRUGS (8)
  1. PREDNISOLONE [Concomitant]
     Dosage: 7.5 MG, 1X/DAY
     Route: 048
  2. ENBREL [Suspect]
     Indication: RHEUMATOID ARTHRITIS
     Dosage: 50 MG, WEEKLY
     Route: 058
     Dates: start: 20080501, end: 20110110
  3. AMLODIPINE [Concomitant]
     Dosage: 5 MG, 1X/DAY
     Route: 048
  4. ESTROGEL [Concomitant]
     Dosage: UNK
     Route: 062
  5. D-CURE [Concomitant]
     Dosage: UNK
  6. COVERSYL PLUS [Concomitant]
     Dosage: UNK
     Route: 048
     Dates: start: 20110301
  7. PRAREDUCT [Concomitant]
     Dosage: 40 MG, 1X/DAY
     Route: 048
  8. PARICALCITOL [Concomitant]
     Dosage: 1X/DAY
     Route: 048

REACTIONS (8)
  - CRYOGLOBULINAEMIA [None]
  - SPINAL OSTEOARTHRITIS [None]
  - DYSPHAGIA [None]
  - GLOMERULONEPHRITIS MEMBRANOPROLIFERATIVE [None]
  - LUNG INFILTRATION [None]
  - ANTINUCLEAR ANTIBODY POSITIVE [None]
  - CYTOMEGALOVIRUS TEST POSITIVE [None]
  - PULMONARY FIBROSIS [None]
